FAERS Safety Report 5314011-5 (Version None)
Quarter: 2007Q2

REPORT INFORMATION
  Report Type: 
  Country: None (occurrence: None)
  Receive Date: 20070501
  Receipt Date: 20070419
  Transmission Date: 20071010
  Serious: Yes (Hospitalization)
  Sender: FDA-Public Use
  Company Number: US-ELI_LILLY_AND_COMPANY-US200704004544

PATIENT
  Age: 65 Year
  Sex: Female
  Weight: 117.51 kg

DRUGS (19)
  1. BYETTA [Suspect]
     Indication: DIABETES MELLITUS NON-INSULIN-DEPENDENT
     Dosage: 5 UG, 2/D
     Route: 058
     Dates: start: 20070101, end: 20070331
  2. BYETTA [Suspect]
     Dosage: 10 UG, 2/D
     Route: 058
     Dates: start: 20070401, end: 20070413
  3. BYETTA [Suspect]
     Dosage: 10 UG, 2/D
     Route: 058
     Dates: start: 20070418
  4. LANTUS [Concomitant]
     Dosage: 70 U, EACH EVENING
     Route: 058
     Dates: start: 20060701
  5. TYLENOL [Concomitant]
     Dosage: 1 UNK, EVERY 4 HRS
     Route: 048
  6. OMEPRAZOLE [Concomitant]
     Dosage: 40 MG, DAILY (1/D)
     Route: 048
  7. LORATADINE [Concomitant]
     Dosage: 10 UG, DAILY (1/D)
     Route: 048
  8. FERRO-SEQUELS [Concomitant]
     Dosage: 1 UNK, DAILY (1/D)
     Route: 048
  9. ADVAIR DISKUS 100/50 [Concomitant]
     Indication: ASTHMA
     Dosage: 1 UNK, 2/D
     Route: 055
  10. ALBUTEROL [Concomitant]
     Route: 055
  11. SIMVASTATIN [Concomitant]
     Dosage: 40 MG, EACH EVENING
     Route: 048
  12. METFORMIN HCL [Concomitant]
     Dosage: 1000 MG, 2/D
     Route: 048
  13. BENICAR [Concomitant]
     Dosage: 40 MG, UNK
     Route: 048
  14. NEURONTIN [Concomitant]
     Dosage: 300 MG, 3/D
     Route: 048
  15. SINGULAIR [Concomitant]
     Dosage: 10 MG, DAILY (1/D)
     Route: 048
  16. POTASSIUM CHLORIDE [Concomitant]
     Dosage: 20 MEQ, DAILY (1/D)
     Route: 048
  17. FUROSEMIDE [Concomitant]
     Dosage: 80 MG, DAILY (1/D)
     Route: 048
  18. PAXIL [Concomitant]
     Dosage: 20 MG, DAILY (1/D)
     Route: 048
  19. NOVOLOG [Concomitant]
     Dosage: 8 U, 3/D
     Route: 058

REACTIONS (6)
  - COLONIC POLYP [None]
  - DIARRHOEA [None]
  - FAECES DISCOLOURED [None]
  - GASTROINTESTINAL HAEMORRHAGE [None]
  - GASTROINTESTINAL INFLAMMATION [None]
  - WEIGHT DECREASED [None]
